FAERS Safety Report 7151459-0 (Version None)
Quarter: 2010Q4

REPORT INFORMATION
  Report Type: 
  Country: None (occurrence: None)
  Receive Date: 20101123
  Receipt Date: 20101116
  Transmission Date: 20110411
  Serious: Yes (Hospitalization)
  Sender: FDA-Public Use
  Company Number: 2010S1000885

PATIENT
  Age: 63 Year
  Sex: Female
  Weight: 52.3 kg

DRUGS (1)
  1. LIVALO [Suspect]
     Indication: HYPERLIPIDAEMIA
     Dosage: 1 MG; 1X; PO
     Route: 048
     Dates: start: 20100421, end: 20101013

REACTIONS (5)
  - ALANINE AMINOTRANSFERASE INCREASED [None]
  - ASPARTATE AMINOTRANSFERASE INCREASED [None]
  - BLOOD BILIRUBIN INCREASED [None]
  - DECREASED APPETITE [None]
  - EPIGASTRIC DISCOMFORT [None]
